FAERS Safety Report 8762420 (Version 1)
Quarter: 2012Q4

REPORT INFORMATION
  Report Type: 
  Country: US (occurrence: US)
  Receive Date: 20120830
  Receipt Date: 20120830
  Transmission Date: 20130627
  Serious: No
  Sender: FDA-Public Use
  Company Number: US-PFIZER INC-2012212780

PATIENT
  Age: 60 Year
  Sex: Female
  Weight: 112 kg

DRUGS (3)
  1. LYRICA [Suspect]
     Indication: FIBROMYALGIA
     Dosage: 75 mg, 2x/day
     Route: 048
     Dates: start: 201207
  2. TRAMADOL [Concomitant]
     Indication: MUSCLE SPASMS
     Dosage: 50 mg, 2x/day
  3. TRAMADOL [Concomitant]
     Indication: MUSCULOSKELETAL STIFFNESS

REACTIONS (2)
  - Drug effect decreased [Unknown]
  - Pain [Unknown]
